FAERS Safety Report 17420460 (Version 1)
Quarter: 2020Q1

REPORT INFORMATION
  Report Type: Spontaneous
  Country: DK (occurrence: DK)
  Receive Date: 20200214
  Receipt Date: 20200214
  Transmission Date: 20200409
  Serious: Yes (Other)
  Sender: FDA-Public Use
  Company Number: PHHY2019DK115442

PATIENT
  Age: 69 Year
  Sex: Female

DRUGS (18)
  1. AMCINONIDE. [Suspect]
     Active Substance: AMCINONIDE
     Indication: SKIN TEST
     Dosage: STRENGTH: 0.1%
     Route: 061
  2. DESOXIMETASONE. [Suspect]
     Active Substance: DESOXIMETASONE
     Indication: SKIN TEST
     Dosage: STRENGTH: 1%
     Route: 061
  3. CINCHOCAINE [Suspect]
     Active Substance: DIBUCAINE
     Indication: HAEMORRHOIDS
     Route: 065
  4. CLOBETASOL PROPIONATE. [Suspect]
     Active Substance: CLOBETASOL PROPIONATE
     Indication: SKIN TEST
     Dosage: STRENGTH: 1%
     Route: 061
  5. SYNALAR [Suspect]
     Active Substance: FLUOCINOLONE ACETONIDE
     Indication: HAEMORRHOIDS
     Route: 065
  6. BENZOCAINA [Suspect]
     Active Substance: BENZOCAINE
     Indication: SKIN TEST
     Dosage: UNK
     Route: 061
  7. DIBUCAINE. [Suspect]
     Active Substance: DIBUCAINE
     Indication: SKIN TEST
     Dosage: UNK
     Route: 061
  8. MOMETASONE FUROATE. [Suspect]
     Active Substance: MOMETASONE FUROATE
     Indication: ECZEMA
  9. BUDESONIDE. [Suspect]
     Active Substance: BUDESONIDE
     Indication: SKIN TEST
     Dosage: STRENGTH: 0.1%
     Route: 061
  10. MOMETASONE FUROATE. [Suspect]
     Active Substance: MOMETASONE FUROATE
     Indication: SKIN TEST
     Dosage: UNK
     Route: 061
  11. TIXOCORTOL PIVALATE [Suspect]
     Active Substance: TIXOCORTOL PIVALATE
     Indication: SKIN TEST
     Route: 061
  12. METAOXEDRIN [Suspect]
     Active Substance: PHENYLEPHRINE HYDROCHLORIDE
     Indication: PRODUCT USED FOR UNKNOWN INDICATION
     Route: 065
  13. TRIAMCINOLONE ACETONIDE. [Suspect]
     Active Substance: TRIAMCINOLONE ACETONIDE
     Indication: SKIN TEST
     Dosage: STRENGTH: 1%
     Route: 061
  14. BETAMETHASONE VALERATE. [Suspect]
     Active Substance: BETAMETHASONE VALERATE
     Dosage: STRENGTH: 0.12%
     Route: 061
  15. BETAMETHASONE VALERATE. [Suspect]
     Active Substance: BETAMETHASONE VALERATE
     Indication: SKIN TEST
     Dosage: STRENGTH: 1%
     Route: 061
  16. HYDROCORTISONE. [Suspect]
     Active Substance: HYDROCORTISONE
     Indication: HAEMORRHOIDS
     Route: 065
  17. DIBUCAINE HYDROCHLORIDE [Suspect]
     Active Substance: DIBUCAINE HYDROCHLORIDE
     Indication: SKIN TEST
     Dosage: STRENGTH: 5%
     Route: 061
  18. TETRACAINE. [Suspect]
     Active Substance: TETRACAINE
     Indication: SKIN TEST
     Dosage: UNK
     Route: 061

REACTIONS (3)
  - Dermatitis allergic [Unknown]
  - Drug ineffective [Unknown]
  - Hypersensitivity [Not Recovered/Not Resolved]
